FAERS Safety Report 21358356 (Version 2)
Quarter: 2022Q4

REPORT INFORMATION
  Report Type: Report from Study
  Country: US (occurrence: US)
  Receive Date: 20220921
  Receipt Date: 20221220
  Transmission Date: 20230113
  Serious: No
  Sender: FDA-Public Use
  Company Number: US-NOVARTISTESTPH-NVSC2022US212478

PATIENT
  Sex: Male
  Weight: 5 kg

DRUGS (1)
  1. ZOLGENSMA [Suspect]
     Active Substance: ONASEMNOGENE ABEPARVOVEC-XIOI
     Indication: Spinal muscular atrophy
     Dosage: 5.5 MG, ONCE/SINGLE ( 5.5ML VIAL X 1 AND 8.3 ML VIAL X 2)
     Route: 042
     Dates: start: 20220318

REACTIONS (1)
  - Asthenia [Unknown]
